FAERS Safety Report 26084054 (Version 1)
Quarter: 2025Q4

REPORT INFORMATION
  Report Type: Spontaneous
  Country: EU (occurrence: EU)
  Receive Date: 20251124
  Receipt Date: 20251124
  Transmission Date: 20260118
  Serious: Yes (Death, Other)
  Sender: GILEAD
  Company Number: EU-GILEAD-2025-0737596

PATIENT
  Sex: Male

DRUGS (2)
  1. YESCARTA [Suspect]
     Active Substance: AXICABTAGENE CILOLEUCEL
     Indication: Diffuse large B-cell lymphoma
     Dosage: UNK, 3L
     Route: 065
     Dates: start: 20240320
  2. EPCORITAMAB [Concomitant]
     Active Substance: EPCORITAMAB
     Dosage: UNK
     Route: 065

REACTIONS (2)
  - Sepsis [Fatal]
  - Neurological symptom [Fatal]
